FAERS Safety Report 10035001 (Version 9)
Quarter: 2016Q1

REPORT INFORMATION
  Report Type: Report from Study
  Country: CN (occurrence: CN)
  Receive Date: 20140325
  Receipt Date: 20160106
  Transmission Date: 20160525
  Serious: Yes (Hospitalization)
  Sender: FDA-Public Use
  Company Number: CN-ROCHE-1366525

PATIENT
  Age: 63 Year
  Sex: Male
  Weight: 68 kg

DRUGS (69)
  1. PREDNISONE. [Suspect]
     Active Substance: PREDNISONE
     Indication: DIFFUSE LARGE B-CELL LYMPHOMA
     Dosage: ON 10/MAR/2014, THE PATIENT RECEIVED MOST RECENT DOSE OF PREDNISONE AT DOSE OF 100 MG.?ON 28/JUN/201
     Route: 048
     Dates: start: 20140211
  2. RIBONUCLEIC ACID [Concomitant]
     Active Substance: RIBONUCLEIC ACID
     Route: 065
     Dates: start: 20140206, end: 20140225
  3. LANSOPRAZOLE. [Concomitant]
     Active Substance: LANSOPRAZOLE
     Route: 065
     Dates: start: 20140522, end: 20140523
  4. PROMETHAZINE HYDROCHLORIDE. [Concomitant]
     Active Substance: PROMETHAZINE HYDROCHLORIDE
     Route: 065
     Dates: start: 20140522, end: 20140522
  5. PLACENTA POLYPEPTIDE [Concomitant]
     Route: 065
     Dates: start: 20140212, end: 20140226
  6. DEXTROMETHORPHAN HYDROBROMIDE. [Concomitant]
     Active Substance: DEXTROMETHORPHAN HYDROBROMIDE
     Route: 065
     Dates: start: 20140522, end: 20140522
  7. FILGRASTIM [Concomitant]
     Active Substance: FILGRASTIM
     Indication: NEUTROPENIA
  8. POTASSIUM CHLORIDE SR [Concomitant]
     Route: 065
     Dates: start: 20140308, end: 20140311
  9. OMEPRAZOLE. [Concomitant]
     Active Substance: OMEPRAZOLE
     Route: 065
     Dates: start: 20140308, end: 20140314
  10. INVERT SUGAR [Concomitant]
     Active Substance: INVERT SUGAR
     Route: 065
     Dates: start: 20140206, end: 20140215
  11. PROMETHAZINE HYDROCHLORIDE. [Concomitant]
     Active Substance: PROMETHAZINE HYDROCHLORIDE
     Indication: INFUSION RELATED REACTION
     Route: 065
     Dates: start: 20140211, end: 20140211
  12. PROMETHAZINE HYDROCHLORIDE. [Concomitant]
     Active Substance: PROMETHAZINE HYDROCHLORIDE
     Route: 065
     Dates: start: 20140211, end: 20140211
  13. DEXRAZOXANE. [Concomitant]
     Active Substance: DEXRAZOXANE
     Route: 065
     Dates: start: 20140212, end: 20140212
  14. PLACENTA POLYPEPTIDE [Concomitant]
     Route: 065
     Dates: start: 20140429, end: 20140503
  15. PLACENTA POLYPEPTIDE [Concomitant]
     Route: 065
     Dates: start: 20140728, end: 20140729
  16. DEXTROMETHORPHAN HYDROBROMIDE. [Concomitant]
     Active Substance: DEXTROMETHORPHAN HYDROBROMIDE
     Route: 065
     Dates: start: 20140225, end: 20140225
  17. DEXTROMETHORPHAN HYDROBROMIDE. [Concomitant]
     Active Substance: DEXTROMETHORPHAN HYDROBROMIDE
     Route: 065
     Dates: start: 20140728, end: 20140728
  18. MOXIFLOXACIN HYDROCHLORIDE. [Concomitant]
     Active Substance: MOXIFLOXACIN HYDROCHLORIDE
     Indication: FEBRILE NEUTROPENIA
     Route: 065
     Dates: start: 20140223, end: 20140226
  19. SODIUM CHLORIDE. [Concomitant]
     Active Substance: SODIUM CHLORIDE
     Indication: FEBRILE NEUTROPENIA
     Route: 065
     Dates: start: 20140223, end: 20140226
  20. OMEPRAZOLE SODIUM [Concomitant]
     Active Substance: OMEPRAZOLE SODIUM
     Route: 065
     Dates: start: 20140526, end: 20140602
  21. GLUTATHIONE [Concomitant]
     Active Substance: GLUTATHIONE
     Route: 065
     Dates: start: 20140605, end: 20140616
  22. GLUTATHIONE [Concomitant]
     Active Substance: GLUTATHIONE
     Route: 065
     Dates: start: 20140728, end: 20140729
  23. CYCLOPHOSPHAMIDE. [Suspect]
     Active Substance: CYCLOPHOSPHAMIDE
     Indication: DIFFUSE LARGE B-CELL LYMPHOMA
     Dosage: ON 06/MAR/2014, THE PATIENT RECEIVED MOST RECENT DOSE OF CYCLOPHOSPHAMIDE AT DOSE OF 1400 MG.?ON 24/
     Route: 042
     Dates: start: 20140212
  24. VINCRISTINE [Suspect]
     Active Substance: VINCRISTINE
     Indication: DIFFUSE LARGE B-CELL LYMPHOMA
     Dosage: ON 06/MAR/2014, THE PATIENT RECEIVED MOST RECENT DOSE OF VINCRISTINE AT DOSE OF 2 MG.?ON 24/JUN/2014
     Route: 050
     Dates: start: 20140212
  25. RIBONUCLEIC ACID [Concomitant]
     Active Substance: RIBONUCLEIC ACID
     Route: 065
     Dates: start: 20140728, end: 20140729
  26. SODIUM BICARBONATE INJECTION [Concomitant]
     Route: 065
     Dates: start: 20140207, end: 20140215
  27. PROMETHAZINE HYDROCHLORIDE. [Concomitant]
     Active Substance: PROMETHAZINE HYDROCHLORIDE
     Indication: ANTIALLERGIC THERAPY
     Route: 065
     Dates: start: 20140218, end: 20140218
  28. SODIUM CHLORIDE. [Concomitant]
     Active Substance: SODIUM CHLORIDE
     Indication: APPENDICEAL ABSCESS
     Route: 065
     Dates: start: 20140314, end: 20140317
  29. POTASSIUM CHLORIDE SR [Concomitant]
     Route: 065
     Dates: start: 20140522, end: 20140523
  30. DOXORUBICIN [Suspect]
     Active Substance: DOXORUBICIN
     Indication: DIFFUSE LARGE B-CELL LYMPHOMA
     Dosage: ON 06/MAR/2014, THE PATIENT RECEIVED MOST RECENT DOSE OF DOXORUBICIN AT DOSE OF 95 MG.?ON 24/JUN/201
     Route: 042
     Dates: start: 20140212
  31. LENTINAN [Concomitant]
     Active Substance: LENTINAN
     Route: 065
     Dates: start: 20140325, end: 20140404
  32. PLACENTA POLYPEPTIDE [Concomitant]
     Route: 065
     Dates: start: 20140605, end: 20140605
  33. FILGRASTIM [Concomitant]
     Active Substance: FILGRASTIM
     Indication: LEUKOPENIA
     Route: 065
     Dates: start: 20140221, end: 20140225
  34. LENTINAN [Concomitant]
     Active Substance: LENTINAN
     Route: 065
     Dates: start: 20140605, end: 20140616
  35. SODIUM BICARBONATE INJECTION [Concomitant]
     Route: 065
     Dates: start: 20140223, end: 20140226
  36. CALCIUM GLUCONATE. [Concomitant]
     Active Substance: CALCIUM GLUCONATE
     Route: 065
     Dates: start: 20140213, end: 20140213
  37. VITAMIN C [Concomitant]
     Active Substance: ASCORBIC ACID
     Route: 065
     Dates: start: 20140208, end: 20140226
  38. HUMAN ALBUMIN [Concomitant]
     Active Substance: ALBUMIN (HUMAN)
     Indication: HYPOALBUMINAEMIA
     Route: 065
     Dates: start: 20140212, end: 20140215
  39. CALCIUM CARBONATE/CHOLECALCIFEROL [Concomitant]
     Active Substance: CALCIUM CARBONATE\CHOLECALCIFEROL
     Indication: HYPOCALCAEMIA
     Route: 065
     Dates: start: 20140227
  40. ALPROSTADIL. [Concomitant]
     Active Substance: ALPROSTADIL
     Route: 065
     Dates: start: 20140522, end: 20140523
  41. ESOMEPRAZOLE SODIUM. [Concomitant]
     Active Substance: ESOMEPRAZOLE SODIUM
     Route: 065
     Dates: start: 20140429, end: 20140503
  42. GLUTATHIONE [Concomitant]
     Active Substance: GLUTATHIONE
     Route: 065
     Dates: start: 20140206, end: 20140226
  43. VITAMIN B6 [Concomitant]
     Active Substance: PYRIDOXINE HYDROCHLORIDE
     Route: 065
     Dates: start: 20140208, end: 20140226
  44. LANSOPRAZOLE. [Concomitant]
     Active Substance: LANSOPRAZOLE
     Route: 065
     Dates: start: 20140207, end: 20140226
  45. CALCIUM GLUCONATE. [Concomitant]
     Active Substance: CALCIUM GLUCONATE
     Indication: HYPOCALCAEMIA
     Route: 065
     Dates: start: 20140208, end: 20140208
  46. PROMETHAZINE HYDROCHLORIDE. [Concomitant]
     Active Substance: PROMETHAZINE HYDROCHLORIDE
     Route: 065
     Dates: start: 20140225, end: 20140225
  47. PROMETHAZINE HYDROCHLORIDE. [Concomitant]
     Active Substance: PROMETHAZINE HYDROCHLORIDE
     Route: 065
     Dates: start: 20140502, end: 20140502
  48. PROMETHAZINE HYDROCHLORIDE. [Concomitant]
     Active Substance: PROMETHAZINE HYDROCHLORIDE
     Route: 065
     Dates: start: 20140728, end: 20140728
  49. DEXTROMETHORPHAN HYDROBROMIDE. [Concomitant]
     Active Substance: DEXTROMETHORPHAN HYDROBROMIDE
     Indication: PYREXIA
     Route: 065
     Dates: start: 20140218, end: 20140218
  50. POLYENEPHOSPHATIDYL CHOLINE [Concomitant]
     Route: 065
     Dates: start: 20140227, end: 20140305
  51. ALPROSTADIL. [Concomitant]
     Active Substance: ALPROSTADIL
     Route: 065
     Dates: start: 20140429, end: 20140503
  52. ALPROSTADIL. [Concomitant]
     Active Substance: ALPROSTADIL
     Route: 065
     Dates: start: 20140605, end: 20140616
  53. HYDROCORTISONE SODIUM SUCCINATE [Concomitant]
     Active Substance: HYDROCORTISONE SODIUM SUCCINATE
     Indication: INFECTION
     Route: 065
     Dates: start: 20140429, end: 20140429
  54. SODIUM DEOXYRIBONUCLEOTIDE [Concomitant]
     Route: 065
     Dates: start: 20140522, end: 20140523
  55. GLUTATHIONE [Concomitant]
     Active Substance: GLUTATHIONE
     Route: 065
     Dates: start: 20140522, end: 20140523
  56. OBINUTUZUMAB [Suspect]
     Active Substance: OBINUTUZUMAB
     Indication: DIFFUSE LARGE B-CELL LYMPHOMA
     Dosage: ON 06/MAR/2014, THE PATIENT RECEIVED MOST RECENT DOSE OF OBINUTUZUMAB AT DOSE OF 4.0 MG/ML AT VOLUME
     Route: 042
     Dates: start: 20140211
  57. LENTINAN [Concomitant]
     Active Substance: LENTINAN
     Route: 065
     Dates: start: 20140207, end: 20140211
  58. LENTINAN [Concomitant]
     Active Substance: LENTINAN
     Route: 065
     Dates: start: 20140728, end: 20140729
  59. CELECOXIB. [Concomitant]
     Active Substance: CELECOXIB
     Indication: PYREXIA
     Route: 065
     Dates: start: 20140211, end: 20140211
  60. DEXRAZOXANE. [Concomitant]
     Active Substance: DEXRAZOXANE
     Route: 065
     Dates: start: 20140502, end: 20140502
  61. DEXTROMETHORPHAN HYDROBROMIDE. [Concomitant]
     Active Substance: DEXTROMETHORPHAN HYDROBROMIDE
     Route: 065
     Dates: start: 20140502, end: 20140502
  62. SODIUM CHLORIDE. [Concomitant]
     Active Substance: SODIUM CHLORIDE
     Indication: APPENDICEAL ABSCESS
     Route: 065
     Dates: start: 20140325, end: 20140404
  63. TORASEMIDE [Concomitant]
     Active Substance: TORSEMIDE
     Indication: POLYURIA
     Route: 065
     Dates: start: 20140223, end: 20140223
  64. TINIDAZOLE. [Concomitant]
     Active Substance: TINIDAZOLE
     Indication: ORAL INFECTION
     Route: 048
     Dates: start: 20140218, end: 20140226
  65. PALONOSETRON HYDROCHLORIDE. [Concomitant]
     Active Substance: PALONOSETRON HYDROCHLORIDE
     Indication: VOMITING
     Route: 065
     Dates: start: 20140522, end: 20140522
  66. PIPERACILLIN SODIUM/TAZOBACTAM SODIUM [Concomitant]
     Active Substance: PIPERACILLIN SODIUM\TAZOBACTAM SODIUM
     Indication: INFECTION
     Route: 065
     Dates: start: 20140429, end: 20140503
  67. RIBONUCLEIC ACID [Concomitant]
     Active Substance: RIBONUCLEIC ACID
     Route: 065
     Dates: start: 20140429, end: 20140503
  68. DEXRAZOXANE. [Concomitant]
     Active Substance: DEXRAZOXANE
     Route: 065
     Dates: start: 20140522, end: 20140522
  69. AZASETRON HYDROCHLORIDE [Concomitant]
     Active Substance: AZASETRON HYDROCHLORIDE
     Indication: VOMITING
     Route: 065
     Dates: start: 20140526, end: 20140528

REACTIONS (2)
  - Infection [Recovered/Resolved]
  - Appendiceal abscess [Recovered/Resolved]

NARRATIVE: CASE EVENT DATE: 20140307
